FAERS Safety Report 14894004 (Version 3)
Quarter: 2018Q2

REPORT INFORMATION
  Report Type: Report from Study
  Country: US (occurrence: US)
  Receive Date: 20180514
  Receipt Date: 20180607
  Transmission Date: 20180711
  Serious: Yes (Hospitalization, Disabling, Other)
  Sender: FDA-Public Use
  Company Number: US-EXELIXIS-XL18418013968

PATIENT
  Age: 66 Year
  Sex: Female
  Weight: 75.1 kg

DRUGS (11)
  1. XL184 [Suspect]
     Active Substance: CABOZANTINIB
     Indication: PRODUCT USED FOR UNKNOWN INDICATION
     Dosage: 40 MG, QD
     Route: 048
     Dates: start: 20180427, end: 20180506
  2. ACETAMINOPHEN. [Concomitant]
     Active Substance: ACETAMINOPHEN
  3. BISACODYL. [Concomitant]
     Active Substance: BISACODYL
  4. LIDOCAINE. [Concomitant]
     Active Substance: LIDOCAINE
  5. ATEZOLIZUMAB. [Suspect]
     Active Substance: ATEZOLIZUMAB
     Indication: PRODUCT USED FOR UNKNOWN INDICATION
     Dosage: 1200 MG, Q3WEEKS
     Route: 042
     Dates: start: 20180427
  6. ^GI COCKTAIL SUSPENSION^ [Concomitant]
  7. MAGNESIUM HYDROXIDE. [Concomitant]
     Active Substance: MAGNESIUM HYDROXIDE
  8. BUPROPION SR [Concomitant]
     Active Substance: BUPROPION HYDROCHLORIDE
  9. CEFTRIAXONE. [Concomitant]
     Active Substance: CEFTRIAXONE
  10. ENOXAPARIN [Concomitant]
     Active Substance: ENOXAPARIN
  11. FENTANYL. [Concomitant]
     Active Substance: FENTANYL

REACTIONS (2)
  - Pyrexia [Recovered/Resolved]
  - Cerebrovascular accident [Recovering/Resolving]

NARRATIVE: CASE EVENT DATE: 20180506
